FAERS Safety Report 17366028 (Version 3)
Quarter: 2020Q1

REPORT INFORMATION
  Report Type: Spontaneous
  Country: US (occurrence: US)
  Receive Date: 20200204
  Receipt Date: 20200314
  Transmission Date: 20200409
  Serious: Yes (Hospitalization)
  Sender: FDA-Public Use
  Company Number: US-UNITED THERAPEUTICS-UNT-2020-001546

PATIENT
  Age: 75 Year
  Sex: Male
  Weight: 87.98 kg

DRUGS (2)
  1. REMODULIN [Suspect]
     Active Substance: TREPROSTINIL
     Indication: PULMONARY ARTERIAL HYPERTENSION
     Dosage: 0.0090 ?G/KG, CONTINUING
     Route: 041
     Dates: start: 20191024
  2. REMODULIN [Suspect]
     Active Substance: TREPROSTINIL
     Dosage: 0.0095 ?G/KG, CONTINUING
     Route: 041
     Dates: end: 202002

REACTIONS (8)
  - Diarrhoea [Unknown]
  - Fatigue [Unknown]
  - Pain in jaw [Unknown]
  - Peripheral coldness [Unknown]
  - Dizziness exertional [Unknown]
  - Fluid retention [Unknown]
  - Feeling cold [Unknown]
  - Dyspnoea [Unknown]

NARRATIVE: CASE EVENT DATE: 20200114
